FAERS Safety Report 16811133 (Version 3)
Quarter: 2019Q4

REPORT INFORMATION
  Report Type: Spontaneous
  Country: FR (occurrence: FR)
  Receive Date: 20190916
  Receipt Date: 20191009
  Transmission Date: 20200122
  Serious: Yes (Death)
  Sender: FDA-Public Use
  Company Number: FR-PFIZER INC-2019394979

PATIENT
  Age: 86 Year
  Sex: Male
  Weight: 65 kg

DRUGS (3)
  1. PREVISCAN [FLUINDIONE] [Concomitant]
     Active Substance: FLUINDIONE
     Dosage: UNK
     Route: 048
  2. VYNDAQEL [Suspect]
     Active Substance: TAFAMIDIS MEGLUMINE
     Dosage: 20 MG, DAILY
     Dates: end: 20190717
  3. TAFAMIDIS [Concomitant]
     Active Substance: TAFAMIDIS MEGLUMINE
     Dosage: UNK
     Route: 048
     Dates: start: 20190522

REACTIONS (1)
  - Cardiac failure [Fatal]

NARRATIVE: CASE EVENT DATE: 20190625
